FAERS Safety Report 7822219-X (Version None)
Quarter: 2011Q4

REPORT INFORMATION
  Report Type: 
  Country: None (occurrence: None)
  Receive Date: 20111018
  Receipt Date: 20111010
  Transmission Date: 20120403
  Serious: Yes (Other)
  Sender: FDA-Public Use
  Company Number: US-CELGENEUS-163-21880-11090736

PATIENT
  Sex: Female
  Weight: 86.26 kg

DRUGS (18)
  1. REVLIMID [Suspect]
     Dosage: 10 MILLIGRAM
     Route: 048
     Dates: start: 20110101
  2. CITALOPRAM [Concomitant]
     Route: 065
  3. VITAMIN B COMPLEX CAP [Concomitant]
     Route: 065
  4. PROBIOTICS [Concomitant]
     Route: 048
  5. MULTI-VITAMINS [Concomitant]
     Route: 065
  6. NYSTATIN [Concomitant]
     Route: 065
  7. ADVAIR DISKUS 100/50 [Concomitant]
     Route: 065
  8. REVLIMID [Suspect]
     Indication: MULTIPLE MYELOMA
     Dosage: 25 MILLIGRAM
     Route: 048
     Dates: start: 20100301
  9. VALTREX [Concomitant]
     Route: 065
  10. CALCIUM CARBONATE [Concomitant]
     Route: 065
  11. SUPER B COMPLEX [Concomitant]
     Route: 065
  12. THEOPHYLLINE [Concomitant]
     Route: 065
  13. FLONASE [Concomitant]
     Route: 065
  14. ALPHA LIPOIC I-CARNITINE [Concomitant]
     Route: 065
  15. ALBUTEROL [Concomitant]
     Route: 065
  16. NORCO [Concomitant]
     Route: 065
  17. FISH OIL [Concomitant]
     Route: 065
  18. CALCIUM + VITAMIN D [Concomitant]
     Route: 065

REACTIONS (3)
  - ASTHMA [None]
  - NASOPHARYNGITIS [None]
  - DIARRHOEA [None]
